FAERS Safety Report 16931441 (Version 4)
Quarter: 2023Q1

REPORT INFORMATION
  Report Type: Spontaneous
  Country: GB (occurrence: GB)
  Receive Date: 20191017
  Receipt Date: 20230214
  Transmission Date: 20230417
  Serious: Yes (Death, Other)
  Sender: FDA-Public Use
  Company Number: GB-SA-2019SA243727

PATIENT
  Age: 41 Year
  Sex: Male

DRUGS (2)
  1. OMEPRAZOLE [Suspect]
     Active Substance: OMEPRAZOLE
     Indication: Dyspepsia
     Dosage: UNK
     Route: 048
  2. OMEPRAZOLE [Suspect]
     Active Substance: OMEPRAZOLE
     Indication: Gastric ulcer

REACTIONS (6)
  - Metastases to liver [Fatal]
  - Oesophageal cancer metastatic [Fatal]
  - Syncope [Fatal]
  - Pain [Fatal]
  - Intentional product misuse [Unknown]
  - Product use in unapproved indication [Unknown]
